FAERS Safety Report 14612708 (Version 3)
Quarter: 2018Q2

REPORT INFORMATION
  Report Type: Report from Study
  Country: US (occurrence: US)
  Receive Date: 20180308
  Receipt Date: 20180405
  Transmission Date: 20180711
  Serious: Yes (Other)
  Sender: FDA-Public Use
  Company Number: US-ROCHE-2084009

PATIENT
  Age: 58 Year
  Sex: Male
  Weight: 122.58 kg

DRUGS (6)
  1. SALMETEROL [Concomitant]
     Active Substance: SALMETEROL
     Dosage: BEFORE OCREVUS INFUSION?ONGOING UNKNOWN
     Route: 065
  2. AMLODIPINE [Concomitant]
     Active Substance: AMLODIPINE BESYLATE
     Indication: HYPERTENSION
     Dosage: ONGOING UNKNOWN
     Route: 065
  3. OCREVUS [Suspect]
     Active Substance: OCRELIZUMAB
     Indication: RELAPSING-REMITTING MULTIPLE SCLEROSIS
     Dosage: ONGOING-YES?ON 03/JUL/2017, THE PATIENT WAS PRESCRIBED WITH OCRELIZUMAB INFUSION INITIAL DOSE AS 300
     Route: 065
     Dates: start: 201708
  4. OCREVUS [Suspect]
     Active Substance: OCRELIZUMAB
     Dosage: ONGOING: UNKNOWN
     Route: 065
     Dates: start: 201708
  5. HYDROCHLOROTHIAZIDE. [Concomitant]
     Active Substance: HYDROCHLOROTHIAZIDE
     Dosage: ONGOING UNKNOWN
     Route: 065
  6. OCREVUS [Suspect]
     Active Substance: OCRELIZUMAB
     Dosage: 3RD DOSE OF OCREVUS
     Route: 065
     Dates: start: 20180222

REACTIONS (4)
  - Respiratory tract infection [Recovered/Resolved]
  - Visual impairment [Recovered/Resolved]
  - Nasopharyngitis [Not Recovered/Not Resolved]
  - Nasopharyngitis [Not Recovered/Not Resolved]

NARRATIVE: CASE EVENT DATE: 20180227
